FAERS Safety Report 25856482 (Version 1)
Quarter: 2025Q3

REPORT INFORMATION
  Report Type: Spontaneous
  Country: US (occurrence: US)
  Receive Date: 20250929
  Receipt Date: 20250929
  Transmission Date: 20251020
  Serious: No
  Sender: ROCHE
  Company Number: US-ROCHE-10000394860

PATIENT
  Sex: Male

DRUGS (2)
  1. HEMLIBRA [Suspect]
     Active Substance: EMICIZUMAB-KXWH
     Indication: Haemophilia carrier
     Dosage: STRENGTH: 60MG/0.4ML
     Route: 058
     Dates: start: 202508
  2. ALTUVIIIO INJ [Concomitant]

REACTIONS (1)
  - Tongue haemorrhage [Unknown]
